FAERS Safety Report 5679981-4 (Version None)
Quarter: 2008Q1

REPORT INFORMATION
  Report Type: 
  Country: None (occurrence: None)
  Receive Date: 20080325
  Receipt Date: 20080325
  Transmission Date: 20080703
  Serious: Yes (Hospitalization)
  Sender: FDA-Public Use
  Company Number: None

PATIENT
  Sex: Male

DRUGS (1)
  1. GENERIC INDERAL [Suspect]
     Indication: ATRIAL FIBRILLATION
     Dosage: 80MG BID ORAL
     Route: 048
     Dates: start: 20030301

REACTIONS (2)
  - ATRIAL FIBRILLATION [None]
  - THERAPEUTIC RESPONSE UNEXPECTED WITH DRUG SUBSTITUTION [None]
